FAERS Safety Report 7207292-4 (Version None)
Quarter: 2011Q1

REPORT INFORMATION
  Report Type: 
  Country: None (occurrence: None)
  Receive Date: 20110103
  Receipt Date: 20101223
  Transmission Date: 20110831
  Serious: Yes (Other)
  Sender: FDA-Public Use
  Company Number: US-JNJFOC-20101208309

PATIENT
  Sex: Female
  Weight: 47.63 kg

DRUGS (4)
  1. ESTROGEN [Concomitant]
     Indication: HORMONE REPLACEMENT THERAPY
     Route: 062
  2. LOMOTIL [Concomitant]
     Indication: DIARRHOEA
     Route: 048
  3. XANAX [Concomitant]
     Indication: ANXIETY
     Route: 048
  4. REMICADE [Suspect]
     Indication: CROHN'S DISEASE
     Route: 042

REACTIONS (4)
  - DISTURBANCE IN ATTENTION [None]
  - ANTINUCLEAR ANTIBODY POSITIVE [None]
  - BLOOD PRESSURE INCREASED [None]
  - AMNESIA [None]
